FAERS Safety Report 24315471 (Version 1)
Quarter: 2024Q3

REPORT INFORMATION
  Report Type: Report from Study
  Country: US (occurrence: US)
  Receive Date: 20240913
  Receipt Date: 20240913
  Transmission Date: 20241016
  Serious: Yes (Other)
  Sender: ABBVIE
  Company Number: US-ABBVIE-5916811

PATIENT
  Age: 71 Year
  Sex: Male

DRUGS (1)
  1. CREON [Suspect]
     Active Substance: PANCRELIPASE AMYLASE\PANCRELIPASE LIPASE\PANCRELIPASE PROTEASE
     Indication: Product used for unknown indication
     Dosage: CREON 36000?- 1 WITH SNACK, 2 WITH MEALS
     Route: 048
     Dates: start: 202201

REACTIONS (3)
  - Recurrent cancer [Recovered/Resolved with Sequelae]
  - Abdominal pain [Unknown]
  - Enzyme level decreased [Unknown]

NARRATIVE: CASE EVENT DATE: 20240606
